FAERS Safety Report 21174807 (Version 2)
Quarter: 2024Q3

REPORT INFORMATION
  Report Type: Spontaneous
  Country: US (occurrence: US)
  Receive Date: 20220805
  Receipt Date: 20240802
  Transmission Date: 20241016
  Serious: No
  Sender: ACCORD
  Company Number: US-Accord-247152

PATIENT
  Age: 63 Year
  Sex: Male
  Weight: 86.1 kg

DRUGS (6)
  1. DOCETAXEL [Suspect]
     Active Substance: DOCETAXEL\DOCETAXEL ANHYDROUS
     Indication: Prostate cancer
     Dosage: STRENGTH: 75 MG/M2/DOSE WITH?SODIUM CHLORIDE 0.9% 250 ML?FREQUENCY: EVERY 3 WEEKS
     Route: 042
     Dates: start: 20191230, end: 20191230
  2. DOCETAXEL [Suspect]
     Active Substance: DOCETAXEL\DOCETAXEL ANHYDROUS
     Indication: Chemotherapy
     Dosage: STRENGTH: 75 MG/M2/DOSE WITH?SODIUM CHLORIDE 0.9% 250 ML?FREQUENCY: EVERY 3 WEEKS
     Route: 042
     Dates: start: 20200120, end: 20200120
  3. DOCETAXEL [Suspect]
     Active Substance: DOCETAXEL\DOCETAXEL ANHYDROUS
     Indication: Chemotherapy
     Dosage: STRENGTH: 75 MG/M2/DOSE WITH?SODIUM CHLORIDE 0.9% 250 ML?FREQUENCY: EVERY 3 WEEKS
     Route: 042
     Dates: start: 20200210, end: 20200210
  4. DOCETAXEL [Suspect]
     Active Substance: DOCETAXEL\DOCETAXEL ANHYDROUS
     Indication: Chemotherapy
     Dosage: STRENGTH: 75 MG/M2/DOSE WITH?SODIUM CHLORIDE 0.9% 250 ML?FREQUENCY: EVERY 3 WEEKS
     Route: 042
     Dates: start: 20200302, end: 20200302
  5. DOCETAXEL [Suspect]
     Active Substance: DOCETAXEL\DOCETAXEL ANHYDROUS
     Indication: Chemotherapy
     Dosage: STRENGTH: 75 MG/M2/DOSE WITH?SODIUM CHLORIDE 0.9% 250 ML?FREQUENCY: EVERY 3 WEEKS
     Route: 042
     Dates: start: 20200324, end: 20200324
  6. DOCETAXEL [Suspect]
     Active Substance: DOCETAXEL\DOCETAXEL ANHYDROUS
     Indication: Chemotherapy
     Dosage: STRENGTH: 75 MG/M2/DOSE WITH?SODIUM CHLORIDE 0.9% 250 ML?FREQUENCY: EVERY 3 WEEKS
     Route: 042
     Dates: start: 20200413, end: 20200413

REACTIONS (1)
  - Dacryostenosis acquired [Not Recovered/Not Resolved]
